FAERS Safety Report 21009066 (Version 1)
Quarter: 2022Q2

REPORT INFORMATION
  Report Type: Spontaneous
  Country: US (occurrence: US)
  Receive Date: 20220627
  Receipt Date: 20220627
  Transmission Date: 20220720
  Serious: No
  Sender: FDA-Public Use
  Company Number: US-drreddys-SPO/USA/22/0151643

PATIENT
  Age: 22 Year
  Sex: Female

DRUGS (1)
  1. ZENATANE [Suspect]
     Active Substance: ISOTRETINOIN
     Indication: Acne cystic
     Dosage: RMA ISSUE DATE: 21 OCTOBER 2021 09:18:03 PM, 23 NOVEMBER 2021 02:53:57 PM, 14 MARCH 2022 02:06:08 PM

REACTIONS (3)
  - Back pain [Unknown]
  - Epistaxis [Unknown]
  - Product use in unapproved indication [Unknown]
